FAERS Safety Report 23763813 (Version 1)
Quarter: 2024Q2

REPORT INFORMATION
  Report Type: Spontaneous
  Country: CA (occurrence: CA)
  Receive Date: 20240419
  Receipt Date: 20240419
  Transmission Date: 20240717
  Serious: Yes (Other)
  Sender: FDA-Public Use
  Company Number: CA-TEVA-VS-3185869

PATIENT
  Age: 66 Year
  Sex: Male

DRUGS (1)
  1. METHOTREXATE SODIUM [Suspect]
     Active Substance: METHOTREXATE SODIUM
     Indication: Granulomatosis with polyangiitis
     Dosage: DURATION-731 UNKNOWN
     Route: 065

REACTIONS (4)
  - Condition aggravated [Unknown]
  - Hypertransaminasaemia [Unknown]
  - Leukopenia [Unknown]
  - Off label use [Unknown]
